FAERS Safety Report 17791794 (Version 3)
Quarter: 2020Q4

REPORT INFORMATION
  Report Type: Spontaneous
  Country: US (occurrence: US)
  Receive Date: 20200515
  Receipt Date: 20201123
  Transmission Date: 20210113
  Serious: Yes (Other)
  Sender: FDA-Public Use
  Company Number: US-PFIZER INC-2020193645

PATIENT
  Age: 56 Year
  Sex: Male

DRUGS (1)
  1. XELJANZ XR [Suspect]
     Active Substance: TOFACITINIB CITRATE
     Dosage: 11 MG

REACTIONS (6)
  - Lung disorder [Unknown]
  - Cough [Not Recovered/Not Resolved]
  - Lung neoplasm malignant [Unknown]
  - Neck mass [Unknown]
  - Illness [Unknown]
  - Asthenia [Unknown]
